FAERS Safety Report 20200097 (Version 1)
Quarter: 2021Q4

REPORT INFORMATION
  Report Type: Spontaneous
  Country: US (occurrence: US)
  Receive Date: 20211217
  Receipt Date: 20211217
  Transmission Date: 20220303
  Serious: Yes (Other)
  Sender: FDA-Public Use
  Company Number: US-MYLANLABS-2021M1093682

PATIENT
  Age: 80 Year
  Sex: Male

DRUGS (11)
  1. DOXORUBICIN [Suspect]
     Active Substance: DOXORUBICIN
     Indication: Double hit lymphoma
     Dosage: 50 MILLIGRAM/SQ. METER, AS A PART OF R-CHOP REGIMEN
     Route: 065
  2. DOXORUBICIN [Suspect]
     Active Substance: DOXORUBICIN
     Dosage: 10 MILLIGRAM/SQ. METER, QD, AS A PART OF R-EPOCH REGIMEN
     Route: 065
  3. PREDNISONE [Suspect]
     Active Substance: PREDNISONE
     Indication: Double hit lymphoma
     Dosage: 100 MILLIGRAM/SQ. METER, AS A PART OF R-CHOP REGIMEN
     Route: 065
  4. PREDNISONE [Suspect]
     Active Substance: PREDNISONE
     Dosage: 60 MILLIGRAM/SQ. METER, QD, AS A PART OF R-EPOCH REGIMEN
     Route: 065
  5. ETOPOSIDE [Suspect]
     Active Substance: ETOPOSIDE
     Indication: Product used for unknown indication
     Dosage: 50 MILLIGRAM/SQ. METER, QD, AS A PART OF R-EPOCH REGIMEN
     Route: 065
  6. RITUXIMAB [Suspect]
     Active Substance: RITUXIMAB
     Indication: Double hit lymphoma
     Dosage: 375 MILLIGRAM/SQ. METER, AS A PART OF R-CHOP AND R-EPOCH REGIMEN
     Route: 065
  7. CYCLOPHOSPHAMIDE [Suspect]
     Active Substance: CYCLOPHOSPHAMIDE
     Indication: Double hit lymphoma
     Dosage: 750 MILLIGRAM/SQ. METER, AS A PART OF R-CHOP AND R-EPOCH REGIMEN
     Route: 065
  8. VINCRISTINE [Suspect]
     Active Substance: VINCRISTINE
     Indication: Double hit lymphoma
     Dosage: 1.4 MILLIGRAM/SQ. METER, AS A PART OF R-CHOP REGIMEN
     Route: 065
  9. VINCRISTINE [Suspect]
     Active Substance: VINCRISTINE
     Dosage: 0.4 MILLIGRAM/SQ. METER, QD, AS A PART OF R-EPOCH REGIMEN
     Route: 065
  10. METHOTREXATE [Concomitant]
     Active Substance: METHOTREXATE
     Indication: Prophylaxis
     Dosage: 15 MILLIGRAM
     Route: 037
  11. NEULASTA [Concomitant]
     Active Substance: PEGFILGRASTIM
     Indication: Prophylaxis
     Dosage: 6 MILLIGRAM
     Route: 058

REACTIONS (3)
  - Anaemia [Unknown]
  - Thrombocytopenia [Unknown]
  - Ejection fraction decreased [Unknown]
